FAERS Safety Report 8122658-6 (Version None)
Quarter: 2012Q1

REPORT INFORMATION
  Report Type: 
  Country: None (occurrence: None)
  Receive Date: 20120208
  Receipt Date: 20120201
  Transmission Date: 20120608
  Serious: Yes (Hospitalization)
  Sender: FDA-Public Use
  Company Number: US-BIOGENIDEC-2011BI047838

PATIENT
  Age: 30 Year
  Sex: Female

DRUGS (1)
  1. TYSABRI [Suspect]
     Indication: MULTIPLE SCLEROSIS
     Route: 042
     Dates: start: 20110901, end: 20111101

REACTIONS (8)
  - PANCREATITIS [None]
  - INFLUENZA LIKE ILLNESS [None]
  - PANCREATOLITHIASIS [None]
  - RENAL FAILURE ACUTE [None]
  - PNEUMONIA [None]
  - PANCREATIC PSEUDOCYST [None]
  - ASTHENIA [None]
  - DEHYDRATION [None]
